FAERS Safety Report 6331812-5 (Version None)
Quarter: 2009Q3

REPORT INFORMATION
  Report Type: 
  Country: None (occurrence: None)
  Receive Date: 20090826
  Receipt Date: 20090817
  Transmission Date: 20100115
  Serious: Yes (Hospitalization)
  Sender: FDA-Public Use
  Company Number: ADR16662009

PATIENT
  Age: 80 Year
  Sex: Female

DRUGS (15)
  1. AMLODIPINE [Suspect]
     Indication: HYPERTENSION
     Dosage: 5MG ORAL
     Route: 048
     Dates: start: 20081101, end: 20090515
  2. METHOTREXATE SODIUM [Concomitant]
  3. ACTONEL [Concomitant]
  4. DIGITOXIN [Concomitant]
  5. DREISAFER [Concomitant]
  6. FOLIC ACID [Concomitant]
  7. PREDNISOLONE [Concomitant]
  8. XIPAMIDE [Concomitant]
  9. CARDANUM [Concomitant]
  10. DELIX [Concomitant]
  11. FALITHROM [Concomitant]
  12. OMEPRAZOLE [Concomitant]
  13. SEROQUEL [Concomitant]
  14. SIMVAHEXAL [Concomitant]
  15. TORASEMIDE [Concomitant]

REACTIONS (2)
  - ALVEOLITIS [None]
  - TRANSAMINASES INCREASED [None]
